FAERS Safety Report 7901891-X (Version None)
Quarter: 2011Q4

REPORT INFORMATION
  Report Type: 
  Country: None (occurrence: None)
  Receive Date: 20111108
  Receipt Date: 20111031
  Transmission Date: 20120403
  Serious: Yes (Other)
  Sender: FDA-Public Use
  Company Number: US-JNJFOC-20111101069

PATIENT
  Sex: Male
  Weight: 70.9 kg

DRUGS (6)
  1. LEXAPRO [Concomitant]
  2. NEXIUM [Concomitant]
  3. INFLIXIMAB, RECOMBINANT [Suspect]
     Indication: INFLAMMATORY BOWEL DISEASE
     Route: 042
     Dates: start: 20100423
  4. ZINC [Concomitant]
  5. OTHER DRUGS (UNSPECIFIED) [Concomitant]
  6. CLINDAMYCIN [Concomitant]

REACTIONS (1)
  - NECROTISING GRANULOMATOUS LYMPHADENITIS [None]
